FAERS Safety Report 25159218 (Version 1)
Quarter: 2025Q2

REPORT INFORMATION
  Report Type: Spontaneous
  Country: GB (occurrence: GB)
  Receive Date: 20250404
  Receipt Date: 20250404
  Transmission Date: 20250717
  Serious: No
  Sender: ALKEM
  Company Number: None

PATIENT
  Sex: Female

DRUGS (2)
  1. ARIPIPRAZOLE [Suspect]
     Active Substance: ARIPIPRAZOLE
     Indication: Product used for unknown indication
     Dosage: 15 MILLIGRAMS, QD (EVERY MORNING)
     Route: 048
  2. CLOZARIL [Suspect]
     Active Substance: CLOZAPINE
     Indication: Product used for unknown indication
     Dosage: UNK, BID (TABLET), (DOSE OF 125 MILLIGRAM EVERY MORNING AND 150 MILLIGRAM EVERY NIGHT BID (DAILY TWI
     Route: 048
     Dates: start: 20071119

REACTIONS (2)
  - Hospice care [Unknown]
  - Anaemia [Unknown]
